FAERS Safety Report 5721256-9 (Version None)
Quarter: 2008Q2

REPORT INFORMATION
  Report Type: 
  Country: None (occurrence: None)
  Receive Date: 20080428
  Receipt Date: 20080428
  Transmission Date: 20081010
  Serious: Yes (Death)
  Sender: FDA-Public Use
  Company Number: None

PATIENT

DRUGS (3)
  1. METHADONE HCL [Suspect]
  2. DILAUDID [Suspect]
  3. AMBIEN [Suspect]

REACTIONS (9)
  - ANGER [None]
  - ANXIETY [None]
  - CHOLELITHIASIS [None]
  - COMPLETED SUICIDE [None]
  - DRUG WITHDRAWAL SYNDROME [None]
  - FEAR [None]
  - FRUSTRATION [None]
  - NERVOUSNESS [None]
  - OVERDOSE [None]
